FAERS Safety Report 12163311 (Version 1)
Quarter: 2016Q1

REPORT INFORMATION
  Report Type: Spontaneous
  Country: US (occurrence: US)
  Receive Date: 20160309
  Receipt Date: 20160309
  Transmission Date: 20160526
  Serious: No
  Sender: FDA-Public Use
  Company Number: US-MYLANLABS-2016M1002838

PATIENT
  Age: 24 Year
  Sex: Female
  Weight: 74.83 kg

DRUGS (1)
  1. TARINA FE 1/20 [Suspect]
     Active Substance: ETHINYL ESTRADIOL\NORETHINDRONE ACETATE
     Indication: CONTRACEPTION
     Dosage: 1MG/0.02MG, QD AS DIRECTED
     Route: 048
     Dates: start: 20160105

REACTIONS (2)
  - Metrorrhagia [Recovering/Resolving]
  - Irritability [Not Recovered/Not Resolved]

NARRATIVE: CASE EVENT DATE: 20160109
